FAERS Safety Report 16958152 (Version 2)
Quarter: 2019Q4

REPORT INFORMATION
  Report Type: Report from Study
  Country: DE (occurrence: DE)
  Receive Date: 20191024
  Receipt Date: 20191231
  Transmission Date: 20200122
  Serious: Yes (Death, Life-Threatening, Hospitalization)
  Sender: FDA-Public Use
  Company Number: DE-MYLANLABS-2019M1100974

PATIENT
  Age: 50 Year
  Sex: Female
  Weight: 69 kg

DRUGS (13)
  1. TRASTUZUMAB. [Suspect]
     Active Substance: TRASTUZUMAB
     Dosage: 6 MILLIGRAM/KILOGRAM, Q21D
     Route: 042
     Dates: start: 20161108, end: 20170827
  2. KEPPRA [Concomitant]
     Active Substance: LEVETIRACETAM
     Indication: EPILEPSY
     Dosage: 1500 MILLIGRAM, QD (LAST DOSE 06/JAN/2017, 1 PRO TAG / PER DAY.)
     Route: 048
     Dates: start: 20060630, end: 20170827
  3. KEPPRA [Concomitant]
     Active Substance: LEVETIRACETAM
     Dosage: UNK
     Route: 065
     Dates: end: 20170827
  4. CLOPIDOGREL [Concomitant]
     Active Substance: CLOPIDOGREL BISULFATE
     Dosage: UNK
     Route: 065
     Dates: start: 20170621, end: 20170827
  5. PERTUZUMAB. [Suspect]
     Active Substance: PERTUZUMAB
     Indication: BREAST CANCER
     Dosage: 420 MILLIGRAM, Q21D
     Route: 065
     Dates: start: 20161108, end: 20170827
  6. PANTOPRAZOLE [Concomitant]
     Active Substance: PANTOPRAZOLE
     Dosage: LAST DOSE ON 06/JAN/2017
     Route: 065
     Dates: start: 20170621, end: 20170827
  7. DOCETAXEL. [Suspect]
     Active Substance: DOCETAXEL
     Indication: HER-2 POSITIVE BREAST CANCER
     Dosage: 1 DOSAGE FORM, Q21D (60-75 MG/M2)
     Route: 042
     Dates: start: 20161108
  8. ATORVASTATIN [Concomitant]
     Active Substance: ATORVASTATIN
     Indication: HYPERCHOLESTEROLAEMIA
     Dosage: UNK
     Route: 065
     Dates: end: 20170827
  9. LETROZOLE. [Suspect]
     Active Substance: LETROZOLE
     Dosage: 2.5 MILLIGRAM
     Route: 065
     Dates: end: 20170818
  10. ZOMETA [Suspect]
     Active Substance: ZOLEDRONIC ACID
     Indication: PRODUCT USED FOR UNKNOWN INDICATION
     Dosage: MOST RECENT DOSE ON 19/JUL/2017
     Route: 065
     Dates: start: 20170302, end: 20170827
  11. LETROZOLE. [Suspect]
     Active Substance: LETROZOLE
     Indication: HER-2 POSITIVE BREAST CANCER
     Dosage: UNK (2 , 5 MG. LAST DOSE PRIRO TO SAE ON 18-AUG-2017)
     Route: 065
     Dates: start: 201405, end: 20170827
  12. ATORVASTATIN [Concomitant]
     Active Substance: ATORVASTATIN
     Dosage: 20 MILLIGRAM, QD (1 PRO TAG / PER DAY)
     Route: 048
     Dates: end: 20170827
  13. TRASTUZUMAB. [Suspect]
     Active Substance: TRASTUZUMAB
     Indication: BREAST CANCER
     Dosage: 6 MILLIGRAM/KILOGRAM, Q21D
     Route: 041
     Dates: start: 20140108, end: 20170827

REACTIONS (10)
  - Neutropenia [Recovered/Resolved]
  - Epistaxis [Recovered/Resolved]
  - Death [Fatal]
  - Vertigo [Recovered/Resolved]
  - Dysgeusia [Recovered/Resolved]
  - Mucosal inflammation [Recovered/Resolved]
  - Dysuria [Not Recovered/Not Resolved]
  - Febrile neutropenia [Not Recovered/Not Resolved]
  - Cough [Not Recovered/Not Resolved]
  - Diarrhoea [Not Recovered/Not Resolved]

NARRATIVE: CASE EVENT DATE: 20161115
